FAERS Safety Report 13551806 (Version 1)
Quarter: 2017Q2

REPORT INFORMATION
  Report Type: Spontaneous
  Country: US (occurrence: US)
  Receive Date: 20170516
  Receipt Date: 20170516
  Transmission Date: 20170830
  Serious: Yes (Other)
  Sender: FDA-Public Use
  Company Number: US-TEVA-768084USA

PATIENT
  Sex: Female

DRUGS (2)
  1. AMPHETAMINE W/DEXTROAMPHETAMINE [Suspect]
     Active Substance: AMPHETAMINE SULFATE\DEXTROAMPHETAMINE
     Indication: ATTENTION DEFICIT/HYPERACTIVITY DISORDER
     Dosage: 10 MILLIGRAM DAILY;
     Route: 065
  2. AMPHETAMINE W/DEXTROAMPHETAMINE [Suspect]
     Active Substance: AMPHETAMINE SULFATE\DEXTROAMPHETAMINE
     Dosage: 20 MILLIGRAM DAILY;
     Route: 065

REACTIONS (8)
  - Disturbance in attention [Unknown]
  - Dementia Alzheimer^s type [Unknown]
  - Tongue discomfort [Unknown]
  - Hypersensitivity [Unknown]
  - Confusional state [Unknown]
  - Aluminium overload [Unknown]
  - Glossodynia [Unknown]
  - Memory impairment [Unknown]
